FAERS Safety Report 19376743 (Version 1)
Quarter: 2021Q2

REPORT INFORMATION
  Report Type: Spontaneous
  Country: US (occurrence: US)
  Receive Date: 20210604
  Receipt Date: 20210604
  Transmission Date: 20210717
  Serious: No
  Sender: FDA-Public Use
  Company Number: US-JACOBUS PHARMACEUTICAL COMPANY, INC.-2112361

PATIENT
  Age: 66 Year
  Sex: Female

DRUGS (3)
  1. TRAMADOL. [Concomitant]
     Active Substance: TRAMADOL
  2. RUZURGI [Suspect]
     Active Substance: AMIFAMPRIDINE
     Indication: MYASTHENIC SYNDROME
     Route: 048
     Dates: start: 20200117
  3. PYRIDOSTIGMINE BROMIDE. [Concomitant]
     Active Substance: PYRIDOSTIGMINE BROMIDE

REACTIONS (1)
  - Drug ineffective [None]
